FAERS Safety Report 5214024-8 (Version None)
Quarter: 2007Q1

REPORT INFORMATION
  Report Type: 
  Country: None (occurrence: None)
  Receive Date: 20070122
  Receipt Date: 20070117
  Transmission Date: 20070707
  Serious: Yes (Death, Other)
  Sender: FDA-Public Use
  Company Number: US-ELI_LILLY_AND_COMPANY-US200608005282

PATIENT
  Age: 18 Year
  Sex: Female
  Weight: 72.562 kg

DRUGS (1)
  1. ZYPREXA [Suspect]

REACTIONS (3)
  - DEATH [None]
  - HYPOGLYCAEMIA [None]
  - PANCREATITIS [None]
